FAERS Safety Report 5841756-0 (Version None)
Quarter: 2008Q3

REPORT INFORMATION
  Report Type: 
  Country: None (occurrence: None)
  Receive Date: 20080811
  Receipt Date: 20080811
  Transmission Date: 20090109
  Serious: No
  Sender: FDA-Public Use
  Company Number: None

PATIENT
  Sex: Male

DRUGS (1)
  1. RAPTIVA [Suspect]
     Indication: PSORIASIS
     Dosage: 0.7ML 1-X COND DOSE THEN 1ML  WEEKLY  SQ
     Route: 058

REACTIONS (2)
  - RASH [None]
  - URTICARIA [None]
